FAERS Safety Report 4680632-6 (Version None)
Quarter: 2005Q2

REPORT INFORMATION
  Report Type: 
  Country: None (occurrence: None)
  Receive Date: 20050531
  Receipt Date: 20050301
  Transmission Date: 20051028
  Serious: Yes (Hospitalization)
  Sender: FDA-Public Use
  Company Number: 05-000145

PATIENT
  Age: 44 Year
  Sex: Female
  Weight: 86.6 kg

DRUGS (4)
  1. OVCON-35 [Suspect]
     Indication: MENSTRUATION IRREGULAR
     Dosage: 35/400 MG, QD,  ORAL
     Route: 048
     Dates: start: 20040101, end: 20050205
  2. LOW DOSE ASPIRIN [Concomitant]
  3. LIPITOR [Concomitant]
  4. PROTONIX ^PHARMACIA^ (PANTOPRAZOLE) TABLET [Concomitant]

REACTIONS (1)
  - DEEP VEIN THROMBOSIS [None]
